FAERS Safety Report 8934387 (Version 2)
Quarter: 2013Q1

REPORT INFORMATION
  Report Type: Spontaneous
  Country: DE (occurrence: DE)
  Receive Date: 20121129
  Receipt Date: 20130219
  Transmission Date: 20140127
  Serious: Yes (Hospitalization)
  Sender: FDA-Public Use
  Company Number: DE-BAYER-2012-107361

PATIENT
  Age: 37 Year
  Sex: Female
  Weight: 57 kg

DRUGS (3)
  1. AVALOX [Suspect]
     Indication: BRONCHOPNEUMONIA
     Dosage: 400 MG, QD
     Dates: start: 20120807, end: 20120812
  2. OXIS [Interacting]
     Dosage: UNK
  3. FORMATRIS [Concomitant]
     Dosage: 6 ?G, PRN

REACTIONS (12)
  - Somnolence [Not Recovered/Not Resolved]
  - Dizziness [Not Recovered/Not Resolved]
  - Nausea [None]
  - Tremor [Not Recovered/Not Resolved]
  - Speech disorder [Not Recovered/Not Resolved]
  - Tachycardia [None]
  - Palpitations [Not Recovered/Not Resolved]
  - Diarrhoea [None]
  - Cardiovascular disorder [None]
  - Drug interaction [None]
  - Confusional state [Not Recovered/Not Resolved]
  - Nervous system disorder [Not Recovered/Not Resolved]
